FAERS Safety Report 13251344 (Version 1)
Quarter: 2017Q1

REPORT INFORMATION
  Report Type: Spontaneous
  Country: CA (occurrence: CA)
  Receive Date: 20170220
  Receipt Date: 20170220
  Transmission Date: 20170428
  Serious: Yes (Disabling, Other)
  Sender: FDA-Public Use
  Company Number: CA-CONCORDIA PHARMACEUTICALS INC.-GSH201702-000955

PATIENT
  Sex: Female

DRUGS (6)
  1. METHOTREXATE. [Suspect]
     Active Substance: METHOTREXATE
     Indication: PRODUCT USED FOR UNKNOWN INDICATION
     Route: 065
  2. XELJANZ [Suspect]
     Active Substance: TOFACITINIB CITRATE
     Indication: RHEUMATOID ARTHRITIS
     Route: 048
  3. HYDROXYCHLOROQUINE [Suspect]
     Active Substance: HYDROXYCHLOROQUINE
     Indication: PRODUCT USED FOR UNKNOWN INDICATION
     Route: 065
  4. SIMPONI [Suspect]
     Active Substance: GOLIMUMAB
     Indication: PRODUCT USED FOR UNKNOWN INDICATION
     Route: 058
  5. XELJANZ [Suspect]
     Active Substance: TOFACITINIB CITRATE
     Route: 048
  6. HUMIRA [Suspect]
     Active Substance: ADALIMUMAB
     Indication: PRODUCT USED FOR UNKNOWN INDICATION
     Route: 058

REACTIONS (11)
  - Urinary tract infection [Not Recovered/Not Resolved]
  - Drug ineffective [Unknown]
  - Cystitis [Not Recovered/Not Resolved]
  - Dysuria [Not Recovered/Not Resolved]
  - Drug intolerance [Not Recovered/Not Resolved]
  - Pain [Not Recovered/Not Resolved]
  - Alopecia [Not Recovered/Not Resolved]
  - Urinary tract disorder [Not Recovered/Not Resolved]
  - Guillain-Barre syndrome [Not Recovered/Not Resolved]
  - Synovitis [Not Recovered/Not Resolved]
  - Adverse drug reaction [Not Recovered/Not Resolved]
